FAERS Safety Report 17016643 (Version 2)
Quarter: 2019Q4

REPORT INFORMATION
  Report Type: Report from Study
  Country: KR (occurrence: KR)
  Receive Date: 20191111
  Receipt Date: 20191206
  Transmission Date: 20200122
  Serious: Yes (Death, Hospitalization, Other)
  Sender: FDA-Public Use
  Company Number: KR-COLLEGIUM PHARMACEUTICAL, INC.-KR-2019COL001337

PATIENT
  Age: 54 Year
  Sex: Female

DRUGS (10)
  1. MEGACE [Concomitant]
     Active Substance: MEGESTROL ACETATE
     Indication: DECREASED APPETITE
     Dosage: UNK
     Dates: start: 20190327
  2. MORPHINE SULPHATE [Concomitant]
     Active Substance: MORPHINE SULFATE
     Indication: BREAST CANCER
     Dosage: UNK
     Dates: start: 20190415, end: 20190417
  3. DUROGESIC [Concomitant]
     Active Substance: FENTANYL
     Indication: BREAST CANCER
     Dosage: UNK
     Dates: start: 20190415, end: 20190418
  4. DUROGESIC [Concomitant]
     Active Substance: FENTANYL
     Indication: PAIN
  5. AMIODARONE [Concomitant]
     Active Substance: AMIODARONE
     Indication: SINUS TACHYCARDIA
     Dosage: UNK
     Dates: start: 20190412, end: 20190412
  6. NUCYNTA ER [Suspect]
     Active Substance: TAPENTADOL HYDROCHLORIDE
     Indication: PAIN
     Dosage: 50 MG, BID
     Route: 048
     Dates: start: 20190327, end: 20190414
  7. METOCLOPRAMIDE. [Concomitant]
     Active Substance: METOCLOPRAMIDE
     Indication: GASTRIC DISORDER
     Dosage: UNK
     Dates: start: 20190214
  8. AMIODARONE [Concomitant]
     Active Substance: AMIODARONE
     Dosage: UNK
     Dates: start: 20190412, end: 20190422
  9. MORPHINE SULPHATE [Concomitant]
     Active Substance: MORPHINE SULFATE
     Indication: PAIN
     Dosage: UNK
     Dates: start: 20190418, end: 20190418
  10. MORPHINE SULPHATE [Concomitant]
     Active Substance: MORPHINE SULFATE
     Dosage: UNK
     Dates: start: 20190419, end: 20190422

REACTIONS (4)
  - Pleural effusion [Fatal]
  - Oxygen saturation decreased [Fatal]
  - Sinus tachycardia [Fatal]
  - Depressed level of consciousness [Fatal]

NARRATIVE: CASE EVENT DATE: 20190412
